FAERS Safety Report 6520507-0 (Version None)
Quarter: 2009Q4

REPORT INFORMATION
  Report Type: 
  Country: None (occurrence: None)
  Receive Date: 20091229
  Receipt Date: 20091222
  Transmission Date: 20100525
  Serious: Yes (Hospitalization)
  Sender: FDA-Public Use
  Company Number: B0615028A

PATIENT
  Sex: Female

DRUGS (10)
  1. AVANDAMET [Suspect]
     Dosage: 1TAB TWICE PER DAY
     Route: 048
     Dates: start: 20050801, end: 20090915
  2. FUCIDINE CAP [Concomitant]
     Dosage: 500MG THREE TIMES PER DAY
     Route: 048
     Dates: start: 20090909, end: 20091102
  3. PYOSTACINE [Concomitant]
     Dosage: 1000MG THREE TIMES PER DAY
     Route: 048
     Dates: start: 20091101
  4. KARDEGIC [Concomitant]
     Dosage: 75MG PER DAY
     Route: 048
     Dates: end: 20091116
  5. PLAVIX [Concomitant]
     Dosage: 75MG PER DAY
     Route: 048
     Dates: end: 20091116
  6. ESIDRIX [Concomitant]
     Indication: DRUG USE FOR UNKNOWN INDICATION
     Dosage: 12.5MG PER DAY
     Route: 048
     Dates: end: 20091109
  7. PERINDOPRIL [Concomitant]
     Indication: DRUG USE FOR UNKNOWN INDICATION
     Dosage: 5MG PER DAY
     Route: 048
     Dates: end: 20091112
  8. OXAZEPAM [Concomitant]
     Indication: DRUG USE FOR UNKNOWN INDICATION
     Dosage: 50MG PER DAY
     Route: 048
     Dates: end: 20091115
  9. SEROPRAM [Concomitant]
     Indication: DRUG USE FOR UNKNOWN INDICATION
     Dosage: 10MG PER DAY
     Route: 048
     Dates: end: 20091115
  10. IMOVANE [Concomitant]
     Indication: DRUG USE FOR UNKNOWN INDICATION
     Route: 048
     Dates: end: 20091115

REACTIONS (3)
  - CARDIAC FAILURE [None]
  - GENERALISED OEDEMA [None]
  - RENAL FAILURE ACUTE [None]
